FAERS Safety Report 16230314 (Version 6)
Quarter: 2020Q2

REPORT INFORMATION
  Report Type: Spontaneous
  Country: CA (occurrence: CA)
  Receive Date: 20190423
  Receipt Date: 20200619
  Transmission Date: 20200713
  Serious: Yes (Hospitalization, Other)
  Sender: FDA-Public Use
  Company Number: CA-PFIZER INC-2019164650

PATIENT
  Age: 56 Year
  Sex: Male

DRUGS (28)
  1. APO TAMSULOSIN [Suspect]
     Active Substance: TAMSULOSIN HYDROCHLORIDE
     Dosage: 1 DF, 1X/DAY
     Route: 065
  2. DILTIAZEM [DILTIAZEM HYDROCHLORIDE] [Suspect]
     Active Substance: DILTIAZEM HYDROCHLORIDE
     Dosage: 1 DF, 1X/DAY
     Route: 065
  3. RATIO-ZOPICLONE [Suspect]
     Active Substance: ZOPICLONE
     Dosage: 1 DF, UNK
     Route: 065
  4. TEVABISOPROL [Suspect]
     Active Substance: BISOPROLOL FUMARATE
     Dosage: 1 DF, 1X/DAY
     Route: 065
  5. ACETYLSALICYLIC ACID [Suspect]
     Active Substance: ASPIRIN
     Dosage: 1 DF, QD
  6. FLOMAX [Suspect]
     Active Substance: TAMSULOSIN HYDROCHLORIDE
     Dosage: 1 DF, 1X/DAY
  7. EMO CORT [Suspect]
     Active Substance: HYDROCORTISONE
     Dosage: 1 DF, 1X/DAY
     Route: 061
  8. APO-ESCITALOPRAM [Suspect]
     Active Substance: ESCITALOPRAM OXALATE
     Dosage: UNK
     Route: 065
  9. METONIA [Suspect]
     Active Substance: METOCLOPRAMIDE
     Indication: MIGRAINE
     Dosage: 3 DF, 1X/DAY
     Route: 065
  10. APO-ESCITALOPRAM [Suspect]
     Active Substance: ESCITALOPRAM OXALATE
     Dosage: 1 DF, QD
  11. APO-TRAZODONE [Suspect]
     Active Substance: TRAZODONE HYDROCHLORIDE
     Dosage: 1 DF, 1X/DAY
     Route: 065
  12. CLONAZEPAM. [Suspect]
     Active Substance: CLONAZEPAM
     Dosage: 1 DF, 3X/DAY
     Route: 065
  13. BRILINTA [Suspect]
     Active Substance: TICAGRELOR
     Dosage: 2 DF, 1X/DAY
     Route: 065
  14. NASONEX [Suspect]
     Active Substance: MOMETASONE FUROATE
     Dosage: 1 DF, 1X/DAY
     Route: 045
  15. NITRO-DUR [Suspect]
     Active Substance: NITROGLYCERIN
     Dosage: UNK DF
     Route: 048
  16. BISOPROL [Suspect]
     Active Substance: BISOPROLOL FUMARATE
     Dosage: 1 DF, 1X/DAY
  17. CICLOPIROX OLAMINE. [Suspect]
     Active Substance: CICLOPIROX OLAMINE
     Dosage: UNK DF
     Route: 065
  18. DELATESTRYL [Suspect]
     Active Substance: TESTOSTERONE ENANTHATE
     Dosage: 0.5 ML, QOW (EVERY TWO WEEKS)
  19. SYNTHROID [Suspect]
     Active Substance: LEVOTHYROXINE SODIUM
     Dosage: 1 DF, 1X/DAY
     Route: 065
  20. MYLAN NITRO [Suspect]
     Active Substance: NITROGLYCERIN
     Indication: PRINZMETAL ANGINA
     Dosage: UNK DF
     Route: 048
  21. MYLAN NITRO SL [Suspect]
     Active Substance: NITROGLYCERIN
     Indication: PRINZMETAL ANGINA
     Dosage: UNK
     Route: 048
  22. NITRO-DUR [Suspect]
     Active Substance: NITROGLYCERIN
     Dosage: 1 DF, 1X/DAY
     Route: 065
  23. ROSUVASTATIN CALCIUM. [Suspect]
     Active Substance: ROSUVASTATIN CALCIUM
     Dosage: 1 DF, 1X/DAY
     Route: 065
  24. NITRO-DUR [Suspect]
     Active Substance: NITROGLYCERIN
     Dosage: 1 DF, QD
     Route: 048
  25. AMLODIPINE BESILATE [Suspect]
     Active Substance: AMLODIPINE BESYLATE
     Dosage: 1.5 DF, 1X/DAY
     Route: 065
  26. TRIATEC [RAMIPRIL] [Suspect]
     Active Substance: RAMIPRIL
     Dosage: 1 DF, Q4D
     Route: 065
  27. DEXILANT [Suspect]
     Active Substance: DEXLANSOPRAZOLE
     Dosage: 1 DF, QD
  28. MYLAN NITRO SL [Suspect]
     Active Substance: NITROGLYCERIN
     Indication: PRINZMETAL ANGINA
     Dosage: UNK
     Route: 048

REACTIONS (3)
  - Device malfunction [Recovered/Resolved]
  - Device dislocation [Recovered/Resolved]
  - Drug ineffective [Recovered/Resolved]
